FAERS Safety Report 15640508 (Version 2)
Quarter: 2018Q4

REPORT INFORMATION
  Report Type: Report from Study
  Country: IT (occurrence: IT)
  Receive Date: 20181120
  Receipt Date: 20181121
  Transmission Date: 20190205
  Serious: Yes (Hospitalization)
  Sender: FDA-Public Use
  Company Number: IT-BAYER-2018-213417

PATIENT
  Age: 82 Year
  Sex: Male

DRUGS (2)
  1. CARDIOASPIRIN 100 MG GASTRO-RESISTANT TABLETS [Suspect]
     Active Substance: ASPIRIN
     Indication: CARDIAC DISORDER
     Dosage: 1 DF, QD
     Route: 048
  2. COUMADIN [Suspect]
     Active Substance: WARFARIN SODIUM
     Indication: CARDIAC DISORDER
     Dosage: 5 MG, PRN
     Route: 048

REACTIONS (4)
  - Asthenia [Recovering/Resolving]
  - International normalised ratio increased [Recovering/Resolving]
  - Labelled drug-drug interaction medication error [None]
  - Melaena [Recovering/Resolving]

NARRATIVE: CASE EVENT DATE: 20180906
